FAERS Safety Report 21968063 (Version 2)
Quarter: 2024Q2

REPORT INFORMATION
  Report Type: Other
  Country: US (occurrence: None)
  Receive Date: 20230208
  Receipt Date: 20240501
  Transmission Date: 20240716
  Serious: Yes (Hospitalization, Other)
  Sender: FDA-Public Use
  Company Number: US-ROCHE-3276235

PATIENT
  Age: 57 Year
  Sex: Female
  Weight: 104.42 kg

DRUGS (21)
  1. OCREVUS [Suspect]
     Active Substance: OCRELIZUMAB
     Indication: Secondary progressive multiple sclerosis
     Dosage: DOT:2018-11-27, 2018-11-13?LAST DOSE ON 22/JUN/2022
     Route: 042
     Dates: start: 20181127
  2. OCREVUS [Suspect]
     Active Substance: OCRELIZUMAB
     Indication: Relapsing-remitting multiple sclerosis
  3. BACLOFEN [Concomitant]
     Active Substance: BACLOFEN
  4. DIAZEPAM [Concomitant]
     Active Substance: DIAZEPAM
  5. MODAFINIL [Concomitant]
     Active Substance: MODAFINIL
  6. ASCORBIC ACID [Concomitant]
     Active Substance: ASCORBIC ACID
  7. VITAMIN D3 [Concomitant]
     Active Substance: CHOLECALCIFEROL
  8. COLACE [Concomitant]
     Active Substance: DOCUSATE SODIUM
  9. FLONASE [Concomitant]
     Active Substance: FLUTICASONE PROPIONATE
  10. LASIX [Concomitant]
     Active Substance: FUROSEMIDE
  11. LISINOPRIL [Concomitant]
     Active Substance: LISINOPRIL
  12. ELIQUIS [Concomitant]
     Active Substance: APIXABAN
  13. METHENAMINE HIPPURATE [Concomitant]
     Active Substance: METHENAMINE HIPPURATE
  14. REGLAN [Concomitant]
     Active Substance: METOCLOPRAMIDE HYDROCHLORIDE
  15. MYRBETRIQ [Concomitant]
     Active Substance: MIRABEGRON
  16. REMERON [Concomitant]
     Active Substance: MIRTAZAPINE
  17. OMEPRAZOLE [Concomitant]
     Active Substance: OMEPRAZOLE
  18. PANTOPRAZOLE [Concomitant]
     Active Substance: PANTOPRAZOLE
  19. PAROXETINE [Concomitant]
     Active Substance: PAROXETINE
  20. OZEMPIC [Concomitant]
     Active Substance: SEMAGLUTIDE
  21. VENLAFAXINE [Concomitant]
     Active Substance: VENLAFAXINE HYDROCHLORIDE

REACTIONS (10)
  - Colitis [Recovered/Resolved]
  - Gastroenteritis salmonella [Recovered/Resolved]
  - Pneumonia [Recovered/Resolved]
  - Intestinal perforation [Recovered/Resolved]
  - Intestinal obstruction [Recovered/Resolved]
  - Gait inability [Recovered/Resolved]
  - Weight fluctuation [Not Recovered/Not Resolved]
  - Sepsis [Recovered/Resolved]
  - Thrombosis [Not Recovered/Not Resolved]
  - Bedridden [Recovered/Resolved]

NARRATIVE: CASE EVENT DATE: 20220101
